FAERS Safety Report 4826306-X (Version None)
Quarter: 2005Q4

REPORT INFORMATION
  Report Type: 
  Country: None (occurrence: None)
  Receive Date: 20051111
  Receipt Date: 20051104
  Transmission Date: 20060501
  Serious: Yes (Hospitalization)
  Sender: FDA-Public Use
  Company Number: 2005SE06365

PATIENT
  Age: 72 Year
  Sex: Male

DRUGS (11)
  1. METOPROLOL SUCCINATE [Suspect]
     Route: 048
     Dates: end: 20050901
  2. DIGOXIN [Suspect]
     Route: 048
     Dates: end: 20050901
  3. GLYTRIN [Concomitant]
     Route: 060
  4. XATRAL [Concomitant]
     Route: 048
  5. AMLODIPINE BESYLATE [Concomitant]
     Route: 048
  6. SIMVASTATIN [Concomitant]
     Route: 048
  7. WARAN [Concomitant]
     Route: 048
  8. MIDAMOR [Concomitant]
     Route: 048
  9. IMPUGAN [Concomitant]
     Route: 048
  10. ISOSORBIDEMONONITRAT [Concomitant]
  11. PLAVIX [Concomitant]
     Route: 048

REACTIONS (4)
  - ATRIAL FIBRILLATION [None]
  - BRADYCARDIA [None]
  - CHEST PAIN [None]
  - VERTIGO [None]
